FAERS Safety Report 11899995 (Version 1)
Quarter: 2016Q1

REPORT INFORMATION
  Report Type: Report from Study
  Country: US (occurrence: US)
  Receive Date: 20160108
  Receipt Date: 20160108
  Transmission Date: 20160526
  Serious: No
  Sender: FDA-Public Use
  Company Number: US-ABBVIE-15P-163-1431654-00

PATIENT
  Age: 61 Year
  Sex: Female
  Weight: 69.46 kg

DRUGS (4)
  1. BENADRYL [Concomitant]
     Active Substance: DIPHENHYDRAMINE HYDROCHLORIDE
     Indication: PRODUCT USED FOR UNKNOWN INDICATION
  2. VIEKIRA PAK [Suspect]
     Active Substance: DASABUVIR\OMBITASVIR\PARITAPREVIR\RITONAVIR
     Indication: HEPATITIS C
     Dosage: TAKE VIEKIRA PER MANUFACTURER PACKAGE DIRECTIONS IN THE AM AND PM
     Route: 065
     Dates: start: 20150709
  3. DOXEPIN [Concomitant]
     Active Substance: DOXEPIN
     Indication: PRODUCT USED FOR UNKNOWN INDICATION
  4. XANAX [Concomitant]
     Active Substance: ALPRAZOLAM
     Indication: PRODUCT USED FOR UNKNOWN INDICATION

REACTIONS (6)
  - Formication [Not Recovered/Not Resolved]
  - Weight increased [Not Recovered/Not Resolved]
  - Erythema [Not Recovered/Not Resolved]
  - Hair growth abnormal [Not Recovered/Not Resolved]
  - Pruritus [Not Recovered/Not Resolved]
  - Decreased appetite [Not Recovered/Not Resolved]

NARRATIVE: CASE EVENT DATE: 20150709
